FAERS Safety Report 5505590-3 (Version None)
Quarter: 2007Q4

REPORT INFORMATION
  Report Type: 
  Country: None (occurrence: None)
  Receive Date: 20071102
  Receipt Date: 20071024
  Transmission Date: 20080405
  Serious: Yes (Hospitalization, Other)
  Sender: FDA-Public Use
  Company Number: US-PFIZER INC-2006109399

PATIENT
  Sex: Male
  Weight: 117.9 kg

DRUGS (13)
  1. CELEBREX [Suspect]
     Indication: ARTHRALGIA
     Dates: start: 20010601
  2. CELEBREX [Suspect]
     Indication: OSTEOARTHRITIS
  3. BEXTRA [Suspect]
     Indication: ARTHRALGIA
  4. BEXTRA [Suspect]
     Indication: OSTEOARTHRITIS
  5. VIOXX [Suspect]
     Indication: ARTHRALGIA
     Dosage: FREQ:ONCE TO TWICE PER DAY
  6. VIOXX [Suspect]
     Indication: OSTEOARTHRITIS
  7. HYDROCODONE BITARTRATE [Concomitant]
     Indication: ARTHRALGIA
     Dates: start: 20000212, end: 20060301
  8. HYDROCODONE BITARTRATE [Concomitant]
     Indication: OSTEOARTHRITIS
  9. DIAZEPAM [Concomitant]
     Indication: PAIN
     Dates: start: 20000929, end: 20060101
  10. DIAZEPAM [Concomitant]
     Indication: OSTEOARTHRITIS
  11. PROPOXYPHENE NAPSYLATE [Concomitant]
     Indication: PAIN
     Dates: start: 20001114, end: 20040501
  12. PROPOXYPHENE NAPSYLATE [Concomitant]
     Indication: OSTEOARTHRITIS
  13. CLONIDINE [Concomitant]
     Indication: HYPERTENSION
     Dates: start: 20010208, end: 20040801

REACTIONS (1)
  - TRANSIENT ISCHAEMIC ATTACK [None]
